FAERS Safety Report 6809934-1 (Version None)
Quarter: 2010Q2

REPORT INFORMATION
  Report Type: 
  Country: None (occurrence: None)
  Receive Date: 20100630
  Receipt Date: 20100622
  Transmission Date: 20101027
  Serious: Yes (Other)
  Sender: FDA-Public Use
  Company Number: A0857191A

PATIENT
  Age: 56 Year
  Sex: Male

DRUGS (1)
  1. PROMACTA [Suspect]
     Indication: HEPATIC CIRRHOSIS
     Dates: start: 20090908, end: 20100305

REACTIONS (2)
  - DRUG INEFFECTIVE [None]
  - HEPATIC NEOPLASM MALIGNANT [None]
